FAERS Safety Report 12467558 (Version 2)
Quarter: 2016Q2

REPORT INFORMATION
  Report Type: Spontaneous
  Country: MX (occurrence: MX)
  Receive Date: 20160615
  Receipt Date: 20160629
  Transmission Date: 20160815
  Serious: Yes (Death, Other)
  Sender: FDA-Public Use
  Company Number: MX-SA-2016SA109131

PATIENT
  Age: 65 Year
  Sex: Female

DRUGS (3)
  1. FABRAZYME [Suspect]
     Active Substance: AGALSIDASE BETA
     Indication: FABRY^S DISEASE
     Dosage: 5 VIAL OF AGALSIDASE BETA/UNIQUE INFUSION
     Route: 041
     Dates: start: 20160504, end: 20160504
  2. FABRAZYME [Suspect]
     Active Substance: AGALSIDASE BETA
     Indication: FABRY^S DISEASE
     Dosage: DUE TO PRODUCT SHORTAGE, THE PATIENT SUSPENDED THE TREATMENT WITH AGALSIDASE BETA
     Route: 041
     Dates: start: 2008
  3. REPLAGAL [Concomitant]
     Active Substance: AGALSIDASE ALFA
     Dates: end: 201604

REACTIONS (2)
  - Cardio-respiratory arrest [Fatal]
  - Sepsis [Not Recovered/Not Resolved]

NARRATIVE: CASE EVENT DATE: 2016
